FAERS Safety Report 25634338 (Version 4)
Quarter: 2025Q4

REPORT INFORMATION
  Report Type: Report from Study
  Country: US (occurrence: US)
  Receive Date: 20250801
  Receipt Date: 20251216
  Transmission Date: 20260118
  Serious: No
  Sender: MALLINCKRODT
  Company Number: US-MALLINCKRODT-MNK202504699

PATIENT
  Age: 75 Year
  Sex: Male

DRUGS (3)
  1. CORTICOTROPIN [Suspect]
     Active Substance: CORTICOTROPIN
     Indication: Polymyositis
     Dosage: UNKNOWN
  2. CORTICOTROPIN [Suspect]
     Active Substance: CORTICOTROPIN
     Indication: Polymyositis
  3. CORTICOTROPIN [Suspect]
     Active Substance: CORTICOTROPIN
     Indication: Inclusion body myositis

REACTIONS (8)
  - Joint swelling [Unknown]
  - Arthritis [Unknown]
  - Back pain [Unknown]
  - Blood pressure increased [Not Recovered/Not Resolved]
  - Fluid retention [Unknown]
  - Peripheral swelling [Not Recovered/Not Resolved]
  - Asthenia [Unknown]
  - Fatigue [Unknown]

NARRATIVE: CASE EVENT DATE: 20250728
